FAERS Safety Report 19058003 (Version 1)
Quarter: 2021Q1

REPORT INFORMATION
  Report Type: Report from Study
  Country: US (occurrence: US)
  Receive Date: 20210325
  Receipt Date: 20210325
  Transmission Date: 20210420
  Serious: Yes (Death)
  Sender: FDA-Public Use
  Company Number: US-BAYER-2021-112184

PATIENT
  Age: 83 Year
  Sex: Female
  Weight: 77.1 kg

DRUGS (3)
  1. ADEMPAS [Suspect]
     Active Substance: RIOCIGUAT
     Indication: EMBOLISM
     Dosage: UNK
     Route: 048
     Dates: start: 20200626
  2. XARELTO [Concomitant]
     Active Substance: RIVAROXABAN
  3. ADEMPAS [Suspect]
     Active Substance: RIOCIGUAT
     Indication: EMBOLISM
     Dosage: 2.5 MG, TID
     Route: 048

REACTIONS (1)
  - Death [Fatal]

NARRATIVE: CASE EVENT DATE: 20210303
